FAERS Safety Report 5982608-5 (Version None)
Quarter: 2008Q4

REPORT INFORMATION
  Report Type: 
  Country: None (occurrence: None)
  Receive Date: 20081208
  Receipt Date: 20081128
  Transmission Date: 20090506
  Serious: Yes (Other)
  Sender: FDA-Public Use
  Company Number: PHBS2008FR06583

PATIENT
  Age: 73 Year
  Sex: Male

DRUGS (2)
  1. PROLEUKIN [Suspect]
     Indication: GASTRIC CANCER STAGE IV
  2. INNACELL [Suspect]
     Indication: METASTASIS

REACTIONS (6)
  - ACTIVATED PARTIAL THROMBOPLASTIN TIME SHORTENED [None]
  - COAGULATION FACTOR DECREASED [None]
  - DISSEMINATED INTRAVASCULAR COAGULATION [None]
  - HYPOTENSION [None]
  - PROTHROMBIN LEVEL DECREASED [None]
  - THROMBOCYTOPENIA [None]
